FAERS Safety Report 7653863-0 (Version None)
Quarter: 2011Q3

REPORT INFORMATION
  Report Type: 
  Country: None (occurrence: None)
  Receive Date: 20110727
  Receipt Date: 20100826
  Transmission Date: 20111222
  Serious: Yes (Other)
  Sender: FDA-Public Use
  Company Number: OMPQ-PR-1008S-0767

PATIENT
  Age: 41 Year
  Sex: Female

DRUGS (7)
  1. PREDNISONE [Concomitant]
  2. HYDROCORTISONE SODIUM SUCCINATE (SOLU CORTEF) (HYDROCORTISONE SODIUM S [Concomitant]
  3. DIPHENHYDRAMINE (BENADRYL) (DIPHENHYDRAMINE) [Concomitant]
  4. OMNIPAQUE 70 [Suspect]
     Indication: ERYTHEMA
     Dosage: 50 ML, SINGLE DOSE
     Dates: start: 20100816, end: 20100816
  5. OMNIPAQUE 70 [Suspect]
     Indication: THROMBOSIS
     Dosage: 50 ML, SINGLE DOSE
     Dates: start: 20100816, end: 20100816
  6. OMNIPAQUE 70 [Suspect]
     Indication: PAIN
     Dosage: 50 ML, SINGLE DOSE
     Dates: start: 20100816, end: 20100816
  7. OMNIPAQUE 70 [Suspect]
     Indication: OEDEMA PERIPHERAL
     Dosage: 50 ML, SINGLE DOSE
     Dates: start: 20100816, end: 20100816

REACTIONS (5)
  - ANAPHYLACTOID REACTION [None]
  - PETECHIAE [None]
  - CHEST DISCOMFORT [None]
  - FLUSHING [None]
  - WHEEZING [None]
